FAERS Safety Report 11849646 (Version 1)
Quarter: 2015Q4

REPORT INFORMATION
  Report Type: Spontaneous
  Country: US (occurrence: None)
  Receive Date: 20151217
  Receipt Date: 20151217
  Transmission Date: 20160305
  Serious: Yes (Hospitalization)
  Sender: FDA-Public Use
  Company Number: None

PATIENT
  Age: 75 Year
  Sex: Male
  Weight: 96.16 kg

DRUGS (5)
  1. VITAMIN D [Concomitant]
     Active Substance: CHOLECALCIFEROL
  2. GLUCOSAMINE [Concomitant]
     Active Substance: GLUCOSAMINE
  3. ASPRIN [Concomitant]
     Active Substance: ASPIRIN
  4. ALFUZOSIN 10MG KROGER [Suspect]
     Active Substance: ALFUZOSIN
     Indication: PROSTATIC DISORDER
     Dosage: 1 PILL ONCE DAILY --?15-20 YEARS
  5. AVODART [Suspect]
     Active Substance: DUTASTERIDE
     Indication: PROSTATIC DISORDER
     Dosage: 1 PILL ONCE DAILY --

REACTIONS (2)
  - Large intestine perforation [None]
  - Colonoscopy abnormal [None]
